FAERS Safety Report 11616601 (Version 2)
Quarter: 2015Q4

REPORT INFORMATION
  Report Type: Spontaneous
  Country: PL (occurrence: PL)
  Receive Date: 20151009
  Receipt Date: 20151015
  Transmission Date: 20160304
  Serious: Yes (Other)
  Sender: FDA-Public Use
  Company Number: PL-ACTAVIS-2015-20930

PATIENT
  Age: 34 Year
  Sex: Female

DRUGS (2)
  1. LEVOSERT [Suspect]
     Active Substance: LEVONORGESTREL
     Indication: MENORRHAGIA
  2. LEVOSERT [Suspect]
     Active Substance: LEVONORGESTREL
     Indication: CONTRACEPTION
     Dosage: 20 MCG, DAILY
     Route: 015
     Dates: start: 20150726, end: 20150922

REACTIONS (3)
  - Device dislocation [Unknown]
  - Pain [Unknown]
  - Genital haemorrhage [Unknown]

NARRATIVE: CASE EVENT DATE: 20150922
